FAERS Safety Report 20591968 (Version 2)
Quarter: 2022Q2

REPORT INFORMATION
  Report Type: Report from Study
  Country: DE (occurrence: DE)
  Receive Date: 20220314
  Receipt Date: 20220407
  Transmission Date: 20220721
  Serious: Yes (Hospitalization, Other)
  Sender: FDA-Public Use
  Company Number: DE-TEVA-2022-DE-2016642

PATIENT
  Age: 62 Year
  Sex: Male

DRUGS (18)
  1. CARBOPLATIN [Suspect]
     Active Substance: CARBOPLATIN
     Indication: Diffuse large B-cell lymphoma stage IV
     Dosage: PART OF R-ICE REGIMEN
     Route: 065
  2. DEXAMETHASONE [Suspect]
     Active Substance: DEXAMETHASONE
     Indication: Diffuse large B-cell lymphoma stage IV
     Dosage: PART OF R-DHAP REGIMEN; 1 COURSE
     Route: 065
  3. DOXORUBICIN [Suspect]
     Active Substance: DOXORUBICIN
     Indication: Diffuse large B-cell lymphoma stage IV
     Dosage: PART OF R-CHOP REGIMEN; 6 COURSES
     Route: 065
  4. ETOPOSIDE [Suspect]
     Active Substance: ETOPOSIDE
     Indication: Diffuse large B-cell lymphoma stage IV
     Dosage: PART OF R-ICE REGIMEN
     Route: 065
  5. METHOTREXATE [Suspect]
     Active Substance: METHOTREXATE
     Indication: Diffuse large B-cell lymphoma stage IV
     Route: 065
  6. VINCRISTINE [Suspect]
     Active Substance: VINCRISTINE
     Indication: Diffuse large B-cell lymphoma stage IV
     Dosage: PART OF R-CHOP REGIMEN; 6 COURSES
     Route: 065
  7. CISPLATIN [Suspect]
     Active Substance: CISPLATIN
     Indication: Diffuse large B-cell lymphoma stage IV
     Dosage: PART OF R-DHAP REGIMEN; 1 COURSE
     Route: 065
  8. RITUXIMAB [Suspect]
     Active Substance: RITUXIMAB
     Indication: Diffuse large B-cell lymphoma stage IV
     Dosage: PART OF R-CHOP REGIMEN; 6 COURSES
     Route: 065
  9. RITUXIMAB [Suspect]
     Active Substance: RITUXIMAB
     Dosage: PART OF R-DHAP REGIMEN; 1 COURSE
     Route: 065
  10. RITUXIMAB [Suspect]
     Active Substance: RITUXIMAB
     Dosage: PART OF R-ICE REGIMEN
     Route: 065
  11. TISAGENLECLEUCEL [Suspect]
     Active Substance: TISAGENLECLEUCEL
     Indication: Diffuse large B-cell lymphoma stage IV
     Dosage: CELLS DOSE 0.2 TIMES 10 8 /KG BODYWEIGHT
     Route: 050
  12. CYCLOPHOSPHAMIDE [Suspect]
     Active Substance: CYCLOPHOSPHAMIDE
     Indication: Diffuse large B-cell lymphoma stage IV
     Dosage: PART OF R-CHOP REGIMEN; 6 COURSES
     Route: 065
  13. PREDNISONE [Suspect]
     Active Substance: PREDNISONE
     Indication: Diffuse large B-cell lymphoma stage IV
     Dosage: PART OF R-CHOP REGIMEN; 6 COURSES
     Route: 065
  14. CYTARABINE [Suspect]
     Active Substance: CYTARABINE
     Indication: Diffuse large B-cell lymphoma stage IV
     Dosage: PART OF R-DHAP REGIMEN; 1 COURSE
     Route: 065
  15. IFOSFAMIDE [Suspect]
     Active Substance: IFOSFAMIDE
     Indication: Diffuse large B-cell lymphoma stage IV
     Dosage: PART OF R-ICE REGIMEN
     Route: 065
  16. OBINUTUZUMAB [Suspect]
     Active Substance: OBINUTUZUMAB
     Indication: Diffuse large B-cell lymphoma stage IV
     Route: 065
  17. BENDAMUSTINE [Suspect]
     Active Substance: BENDAMUSTINE
     Indication: Diffuse large B-cell lymphoma stage IV
     Route: 065
  18. FLUDARABINE [Concomitant]
     Active Substance: FLUDARABINE PHOSPHATE
     Indication: Lymphodepletion
     Route: 065

REACTIONS (3)
  - Immune effector cell-associated neurotoxicity syndrome [Recovering/Resolving]
  - Polyneuropathy [Recovering/Resolving]
  - Drug ineffective [Unknown]
